FAERS Safety Report 16724251 (Version 1)
Quarter: 2019Q3

REPORT INFORMATION
  Report Type: Spontaneous
  Country: DE (occurrence: DE)
  Receive Date: 20190821
  Receipt Date: 20190821
  Transmission Date: 20191005
  Serious: Yes (Hospitalization)
  Sender: FDA-Public Use
  Company Number: DE-ELI_LILLY_AND_COMPANY-DE201908007549

PATIENT
  Age: 67 Year
  Sex: Female

DRUGS (13)
  1. GEMCITABINE HYDROCHLORIDE. [Suspect]
     Active Substance: GEMCITABINE HYDROCHLORIDE
     Indication: ADENOCARCINOMA PANCREAS
     Dosage: UNK UNK, UNKNOWN
     Route: 065
     Dates: end: 201903
  2. ACTRAPID [Concomitant]
     Active Substance: INSULIN HUMAN
     Indication: DIABETES MELLITUS
     Dosage: 26 IU IN THE MORNING AND 22 IU IN THE NOON
     Route: 058
     Dates: start: 20190420
  3. ACTRAPID [Concomitant]
     Active Substance: INSULIN HUMAN
     Dosage: 26 IU IN THE MORNING AND 22 IU IN THE NOON
     Route: 058
     Dates: start: 20190420
  4. NALOXEGOL [Suspect]
     Active Substance: NALOXEGOL
     Indication: CONSTIPATION
     Dosage: 12.5 MG, UNKNOWN
     Route: 048
     Dates: start: 20190320
  5. PACLITAXEL. [Suspect]
     Active Substance: PACLITAXEL
     Indication: ADENOCARCINOMA PANCREAS
     Dosage: UNK, UNKNOWN
     Route: 065
     Dates: end: 201903
  6. MOVICOL [MACROGOL 3350;POTASSIUM CHLORIDE;SOD [Concomitant]
     Indication: CONSTIPATION
     Dosage: 1 DF, IN THE MORNING
     Route: 048
     Dates: start: 20190420
  7. GABAPENTIN. [Concomitant]
     Active Substance: GABAPENTIN
     Indication: NEURALGIA
     Dosage: 300 MG, IN THE MORNING AND EVENING
     Route: 048
     Dates: start: 20190420
  8. MCP [Concomitant]
     Active Substance: METOCLOPRAMIDE HYDROCHLORIDE
     Indication: TUMOUR PAIN
     Dosage: 10 MG, TID
     Route: 048
     Dates: start: 20190420
  9. NOVAMINSULFON [Concomitant]
     Active Substance: METAMIZOLE
     Indication: TUMOUR PAIN
     Dosage: 30 DROPS, 4X DAY
     Route: 048
     Dates: start: 20190420
  10. MORPHINE [Concomitant]
     Active Substance: MORPHINE
     Indication: TUMOUR PAIN
     Dosage: 13 MG, UNKNOWN
     Route: 042
     Dates: start: 20190420, end: 20190429
  11. ACTRAPHANE [Concomitant]
     Active Substance: INSULIN HUMAN
     Indication: DIABETES MELLITUS
     Dosage: 28 IU, IN THE EVENING
     Route: 058
     Dates: start: 20190420
  12. PANTOZOL [Concomitant]
     Active Substance: PANTOPRAZOLE SODIUM
     Indication: PROPHYLAXIS
     Dosage: 40 MG, IN THE MORNING
     Route: 048
     Dates: start: 20190420
  13. MORPHINE [Concomitant]
     Active Substance: MORPHINE
     Indication: PRODUCT USED FOR UNKNOWN INDICATION
     Dosage: 5 MG IN 50 ML NACL, FLOW RATE 2ML/H, BOLUS 8 MG, BLOCKING TIME 30 MINUTES
     Route: 042
     Dates: start: 20190430

REACTIONS (4)
  - Gastrooesophageal reflux disease [Unknown]
  - General physical health deterioration [Recovering/Resolving]
  - Obstruction gastric [Unknown]
  - Gastric stenosis [Unknown]

NARRATIVE: CASE EVENT DATE: 20190420
